APPROVED DRUG PRODUCT: SUBSYS
Active Ingredient: FENTANYL
Strength: 0.1MG **Federal Register determination that product was not discontinued or withdrawn for safety or effectiveness reasons**
Dosage Form/Route: SPRAY;SUBLINGUAL
Application: N202788 | Product #001
Applicant: BTCP PHARMA LLC
Approved: Jan 4, 2012 | RLD: Yes | RS: No | Type: DISCN

PATENTS:
Patent 8486973 | Expires: Apr 27, 2030
Patent 9642797 | Expires: Jan 25, 2027
Patent 8835460 | Expires: Jan 25, 2027
Patent 9289387 | Expires: Jan 25, 2027
Patent 8486972 | Expires: Apr 27, 2030
Patent 9241935 | Expires: Jan 25, 2027
Patent 10016403 | Expires: Jan 25, 2027
Patent 8835459 | Expires: Jan 25, 2027
Patent 10610523 | Expires: Jan 25, 2027
Patent 9642844 | Expires: Jan 25, 2027